FAERS Safety Report 8809932 (Version 1)
Quarter: 2012Q4

REPORT INFORMATION
  Report Type: 
  Country: FR (occurrence: FR)
  Receive Date: 20120926
  Receipt Date: 20120926
  Transmission Date: 20130627
  Serious: Yes (Other)
  Sender: FDA-Public Use
  Company Number: FR-TEVA-337884ISR

PATIENT
  Age: 24 Year
  Sex: Male

DRUGS (2)
  1. FINASTERIDE [Suspect]
     Indication: ANDROGENETIC ALOPECIA
     Dosage: 1 Milligram Daily; Ratiopharm
     Route: 048
     Dates: start: 20120112, end: 20120410
  2. FINASTERIDE [Suspect]
     Dosage: 1 Milligram Daily; Teva
     Route: 048
     Dates: start: 20120410, end: 20120426

REACTIONS (2)
  - Drug ineffective [Recovered/Resolved]
  - Alopecia [Recovered/Resolved with Sequelae]
